FAERS Safety Report 7727878-8 (Version None)
Quarter: 2011Q3

REPORT INFORMATION
  Report Type: 
  Country: None (occurrence: None)
  Receive Date: 20110905
  Receipt Date: 20110825
  Transmission Date: 20111222
  Serious: No
  Sender: FDA-Public Use
  Company Number: US-BIOGENIDEC-2011BI028068

PATIENT
  Age: 34 Year
  Sex: Female

DRUGS (3)
  1. TYSABRI [Suspect]
     Indication: MULTIPLE SCLEROSIS
     Route: 042
     Dates: start: 20070731, end: 20070731
  2. TYSABRI [Suspect]
     Route: 042
     Dates: start: 20071101, end: 20071101
  3. TYSABRI [Suspect]
     Route: 042
     Dates: start: 20100310

REACTIONS (1)
  - MENINGITIS [None]
